FAERS Safety Report 7512639-5 (Version None)
Quarter: 2011Q2

REPORT INFORMATION
  Report Type: 
  Country: None (occurrence: None)
  Receive Date: 20110531
  Receipt Date: 20110525
  Transmission Date: 20111010
  Serious: Yes (Hospitalization, Disabling, Congenital Anomaly, Other)
  Sender: FDA-Public Use
  Company Number: DE-ROCHE-738134

PATIENT
  Sex: Female
  Weight: 1.6 kg

DRUGS (11)
  1. TACROLIMUS [Concomitant]
     Indication: RENAL TRANSPLANT
  2. MYCOPHENOLIC ACID [Suspect]
     Indication: RENAL TRANSPLANT
     Route: 064
     Dates: end: 20100506
  3. PREDNISOLONE [Concomitant]
     Indication: RENAL TRANSPLANT
  4. FUROSEMIDE [Concomitant]
     Dates: end: 20100506
  5. EISEN(II)-GLUCONAT [Concomitant]
  6. FLUVASTATIN [Concomitant]
     Dates: end: 20100506
  7. ENALAPRIL [Concomitant]
     Dates: end: 20100506
  8. ESOMEPRAZOLE MAGNESIUM [Concomitant]
     Indication: RENAL TRANSPLANT
     Dates: end: 20100506
  9. AZATHIOPRIN [Concomitant]
     Indication: RENAL TRANSPLANT
  10. ERYTHROPOIETIN ALFA [Concomitant]
     Dates: end: 20100506
  11. LEVOTHYROXINE SODIUM [Concomitant]

REACTIONS (10)
  - MICROTIA [None]
  - MICROPHTHALMOS [None]
  - PREMATURE LABOUR [None]
  - CONDUCTIVE DEAFNESS [None]
  - MICROCEPHALY [None]
  - IRIS COLOBOMA [None]
  - COLOBOMA [None]
  - EXTERNAL AUDITORY CANAL ATRESIA [None]
  - ARACHNOID CYST [None]
  - CONJUNCTIVITIS [None]
